FAERS Safety Report 19106935 (Version 1)
Quarter: 2021Q2

REPORT INFORMATION
  Report Type: Report from Study
  Country: US (occurrence: US)
  Receive Date: 20210408
  Receipt Date: 20210408
  Transmission Date: 20210717
  Serious: Yes (Other)
  Sender: FDA-Public Use
  Company Number: US-AUROBINDO-AUR-APL-2021-013709

PATIENT
  Age: 26 Year
  Sex: Male

DRUGS (4)
  1. VINCRISTINE SULFATE. [Suspect]
     Active Substance: VINCRISTINE SULFATE
     Indication: RETINOBLASTOMA
     Dosage: UNK (4 CYCLES)
     Route: 042
  2. ETOPOSIDE. [Suspect]
     Active Substance: ETOPOSIDE
     Indication: RETINOBLASTOMA
     Dosage: UNK (4 CYCLES)
     Route: 042
  3. MELPHALAN INJECTION [Suspect]
     Active Substance: MELPHALAN
     Indication: RETINOBLASTOMA
     Dosage: 25 MICROGRAM
     Route: 050
  4. CARBOPLATIN. [Suspect]
     Active Substance: CARBOPLATIN
     Indication: RETINOBLASTOMA
     Dosage: 4 CYCLES
     Route: 042

REACTIONS (2)
  - Retinal toxicity [Unknown]
  - Retinal pigment epitheliopathy [Unknown]
